FAERS Safety Report 7034856-3 (Version None)
Quarter: 2010Q4

REPORT INFORMATION
  Report Type: 
  Country: None (occurrence: None)
  Receive Date: 20101008
  Receipt Date: 20101001
  Transmission Date: 20110411
  Serious: Yes (Death)
  Sender: FDA-Public Use
  Company Number: JP-ROCHE-726998

PATIENT
  Sex: Female
  Weight: 40 kg

DRUGS (17)
  1. HERCEPTIN [Suspect]
     Indication: BREAST CANCER
     Route: 041
     Dates: start: 20100407, end: 20100407
  2. HERCEPTIN [Suspect]
     Route: 041
     Dates: start: 20100414, end: 20100716
  3. HERCEPTIN [Suspect]
     Route: 041
     Dates: start: 20100813, end: 20100813
  4. PACLITAXEL [Concomitant]
     Route: 041
     Dates: start: 20100414, end: 20100716
  5. TETRAMIDE [Concomitant]
     Route: 048
  6. MUCOSTA [Concomitant]
     Route: 048
  7. MAGMITT [Concomitant]
     Route: 048
  8. RESLIN [Concomitant]
     Route: 048
  9. PURSENNID [Concomitant]
     Route: 048
  10. OMEPRAL [Concomitant]
     Route: 048
  11. SILECE [Concomitant]
     Route: 048
  12. REFLEX [Concomitant]
     Route: 048
  13. BIOFERMIN [Concomitant]
     Route: 048
  14. AMLODIPINE BESYLATE [Concomitant]
     Route: 048
  15. OLMETEC [Concomitant]
     Route: 048
  16. AMOBAN [Concomitant]
     Route: 048
  17. LEXOTAN [Concomitant]
     Route: 048

REACTIONS (2)
  - ASPHYXIA [None]
  - COMPLETED SUICIDE [None]
